FAERS Safety Report 5452114-5 (Version None)
Quarter: 2007Q3

REPORT INFORMATION
  Report Type: 
  Country: None (occurrence: None)
  Receive Date: 20070912
  Receipt Date: 20070828
  Transmission Date: 20080115
  Serious: Yes (Other)
  Sender: FDA-Public Use
  Company Number: 2007AP000969

PATIENT

DRUGS (1)
  1. METFORMIN HCL [Suspect]

REACTIONS (5)
  - DEHYDRATION [None]
  - DIARRHOEA [None]
  - LACTIC ACIDOSIS [None]
  - ORAL INTAKE REDUCED [None]
  - RENAL FAILURE ACUTE [None]
